FAERS Safety Report 13289708 (Version 1)
Quarter: 2017Q1

REPORT INFORMATION
  Report Type: Spontaneous
  Country: GR (occurrence: GR)
  Receive Date: 20170302
  Receipt Date: 20170302
  Transmission Date: 20170428
  Serious: Yes (Death, Other)
  Sender: FDA-Public Use
  Company Number: GR-ELI_LILLY_AND_COMPANY-GR201702009017

PATIENT

DRUGS (4)
  1. CISPLATIN. [Suspect]
     Active Substance: CISPLATIN
     Indication: NON-SMALL CELL LUNG CANCER RECURRENT
     Dosage: 80 MG/M2, CYCLICAL
     Route: 042
  2. VITAMIN B12 [Concomitant]
     Active Substance: CYANOCOBALAMIN
     Indication: SUPPLEMENTATION THERAPY
     Dosage: 1000 MG, CYCLICAL
     Route: 030
  3. PEMETREXED [Suspect]
     Active Substance: PEMETREXED
     Indication: NON-SMALL CELL LUNG CANCER RECURRENT
     Dosage: 500 MG/M2, CYCLICAL
     Route: 042
  4. FOLATE [Concomitant]
     Active Substance: FOLATE SODIUM
     Indication: SUPPLEMENTATION THERAPY
     Dosage: 2.5 MG, QD
     Route: 048

REACTIONS (2)
  - Lung infection [Unknown]
  - Cardiopulmonary failure [Fatal]
